FAERS Safety Report 18232824 (Version 2)
Quarter: 2020Q3

REPORT INFORMATION
  Report Type: Spontaneous
  Country: RO (occurrence: RO)
  Receive Date: 20200904
  Receipt Date: 20200916
  Transmission Date: 20201103
  Serious: Yes (Death)
  Sender: FDA-Public Use
  Company Number: RO-ROCHE-2671323

PATIENT
  Age: 55 Year
  Sex: Female

DRUGS (3)
  1. TRAMADOL. [Concomitant]
     Active Substance: TRAMADOL
  2. EUTHYROX [Concomitant]
     Active Substance: LEVOTHYROXINE SODIUM
     Indication: HYPOTHYROIDISM
  3. TECENTRIQ [Suspect]
     Active Substance: ATEZOLIZUMAB
     Indication: TRANSITIONAL CELL CARCINOMA
     Dosage: 06/JUL/2020 (LAST ADMINISTRATION)
     Route: 065
     Dates: start: 201911

REACTIONS (4)
  - Sepsis [Fatal]
  - Enterovesical fistula [Fatal]
  - Ureteric fistula [Fatal]
  - Wound dehiscence [Unknown]
